FAERS Safety Report 21833104 (Version 3)
Quarter: 2023Q1

REPORT INFORMATION
  Report Type: Report from Study
  Country: US (occurrence: US)
  Receive Date: 20230106
  Receipt Date: 20230214
  Transmission Date: 20230418
  Serious: Yes (Life-Threatening, Hospitalization, Other)
  Sender: FDA-Public Use
  Company Number: US-BEIGENE-BGN-2022-011133

PATIENT

DRUGS (2)
  1. BRUKINSA [Suspect]
     Active Substance: ZANUBRUTINIB
     Indication: B-cell small lymphocytic lymphoma
     Dosage: 160 MILLIGRAM, BID
     Route: 048
     Dates: start: 20221107
  2. WARFARIN [Concomitant]
     Active Substance: WARFARIN
     Indication: Anticoagulant therapy
     Dosage: UNK

REACTIONS (13)
  - Pericardial effusion [Recovering/Resolving]
  - Atrial fibrillation [Not Recovered/Not Resolved]
  - Syncope [Recovered/Resolved]
  - Hallucination [Recovered/Resolved]
  - Marginal zone lymphoma [Unknown]
  - Oedema peripheral [Recovering/Resolving]
  - COVID-19 [Unknown]
  - Pain in extremity [Recovering/Resolving]
  - Hypotension [Recovered/Resolved]
  - Pyrexia [Recovered/Resolved]
  - Disease progression [Unknown]
  - Contusion [Unknown]
  - Off label use [Unknown]

NARRATIVE: CASE EVENT DATE: 20221115
